FAERS Safety Report 13173953 (Version 1)
Quarter: 2017Q1

REPORT INFORMATION
  Report Type: Spontaneous
  Country: US (occurrence: US)
  Receive Date: 20170131
  Receipt Date: 20170131
  Transmission Date: 20170428
  Serious: Yes (Other)
  Sender: FDA-Public Use
  Company Number: US-ABBVIE-16K-163-1660060-00

PATIENT
  Sex: Female

DRUGS (2)
  1. HUMIRA [Suspect]
     Active Substance: ADALIMUMAB
     Indication: PSORIATIC ARTHROPATHY
     Route: 058
     Dates: start: 2015
  2. DOXYCYCLINE. [Interacting]
     Active Substance: DOXYCYCLINE
     Indication: SINUSITIS
     Route: 065

REACTIONS (6)
  - Thyroid cancer [Unknown]
  - Drug interaction [Unknown]
  - Photosensitivity reaction [Unknown]
  - Arthralgia [Unknown]
  - Sinusitis [Unknown]
  - Joint swelling [Unknown]
